FAERS Safety Report 7365703-8 (Version None)
Quarter: 2011Q1

REPORT INFORMATION
  Report Type: 
  Country: None (occurrence: None)
  Receive Date: 20110322
  Receipt Date: 20110311
  Transmission Date: 20110831
  Serious: Yes (Other)
  Sender: FDA-Public Use
  Company Number: US-PFIZER INC-2006069825

PATIENT
  Sex: Male

DRUGS (3)
  1. NEURONTIN [Suspect]
     Indication: ILL-DEFINED DISORDER
     Dosage: 200 MG, UNK
     Dates: start: 20020828, end: 20020927
  2. NEURONTIN [Suspect]
     Dosage: UNK
     Dates: start: 20030410
  3. NEURONTIN [Suspect]
     Dosage: 600 MG, UNK
     Dates: start: 20030211

REACTIONS (1)
  - SUICIDE ATTEMPT [None]
